FAERS Safety Report 7116283-3 (Version None)
Quarter: 2010Q4

REPORT INFORMATION
  Report Type: 
  Country: None (occurrence: None)
  Receive Date: 20101122
  Receipt Date: 20101107
  Transmission Date: 20110411
  Serious: No
  Sender: FDA-Public Use
  Company Number: US-B.I. PHARMACEUTICALS,INC./RIDGEFIELD-2010-BP-12457BP

PATIENT
  Sex: Female

DRUGS (3)
  1. SPIRIVA [Suspect]
     Indication: WHEEZING
     Dosage: 18 MCG
     Route: 055
     Dates: start: 20101001
  2. DIOVAN HCT [Concomitant]
     Indication: HYPERTENSION
  3. AMOX/K CLAV [Concomitant]
     Indication: TOOTH INFECTION

REACTIONS (1)
  - AGEUSIA [None]
